FAERS Safety Report 22362577 (Version 1)
Quarter: 2023Q2

REPORT INFORMATION
  Report Type: Report from Study
  Country: CO (occurrence: CO)
  Receive Date: 20230524
  Receipt Date: 20230524
  Transmission Date: 20230721
  Serious: Yes (Other)
  Sender: FDA-Public Use
  Company Number: CO-APIL-2315005US

PATIENT
  Sex: Female
  Weight: 76 kg

DRUGS (2)
  1. BOTULINUM TOXIN TYPE A [Suspect]
     Active Substance: BOTULINUM TOXIN TYPE A
     Indication: Migraine
     Dosage: 200 UNITS, SINGLE
     Route: 030
     Dates: start: 20220715, end: 20220715
  2. VANCOMYCIN [Suspect]
     Active Substance: VANCOMYCIN
     Indication: Product used for unknown indication

REACTIONS (9)
  - Pleural effusion [Unknown]
  - Meningitis [Unknown]
  - Menstruation irregular [Not Recovered/Not Resolved]
  - Pneumonia [Unknown]
  - Headache [Recovering/Resolving]
  - Pyrexia [Recovering/Resolving]
  - Drug effect less than expected [Unknown]
  - Pruritus [Recovered/Resolved]
  - Erythema [Recovered/Resolved]

NARRATIVE: CASE EVENT DATE: 20220801
